FAERS Safety Report 4753288-1 (Version None)
Quarter: 2005Q3

REPORT INFORMATION
  Report Type: 
  Country: None (occurrence: None)
  Receive Date: 20050824
  Receipt Date: 20050811
  Transmission Date: 20060218
  Serious: Yes (Hospitalization)
  Sender: FDA-Public Use
  Company Number: 2005076976

PATIENT
  Age: 81 Year
  Sex: Female
  Weight: 78.4723 kg

DRUGS (15)
  1. GEODON [Suspect]
     Indication: ILL-DEFINED DISORDER
     Dosage: 160 MG (160 MG, 1 IN 1 D), ORAL
     Route: 048
     Dates: start: 20050217
  2. ACETYLSALICYLIC ACID SRT [Suspect]
     Indication: ILL-DEFINED DISORDER
  3. ZYPREXA [Suspect]
     Indication: MAJOR DEPRESSION
     Dosage: 2.5 MG (2.5 MG, 1 IN 1 D),
  4. WELLBUTRIN [Concomitant]
  5. LEVOTHROID [Concomitant]
  6. MULTIVITAMIN [Concomitant]
  7. DOCUSATE (DOCUSATE) [Concomitant]
  8. OSCAL (CALCIUM CARBONATE) [Concomitant]
  9. PSYLLIUM HYDROPHILIC MUCILLOID (PSYLLIUM HYDROPHILIC MUCILLOID) [Concomitant]
  10. VITAMIN C (VITAMIN C) [Concomitant]
  11. LIPITOR [Concomitant]
  12. DETROL LA [Concomitant]
  13. VITAMIN E [Concomitant]
  14. VALSARTAN [Concomitant]
  15. HYDROCHLOROTHIAZIDE [Concomitant]

REACTIONS (13)
  - BODY HEIGHT DECREASED [None]
  - DEPRESSION [None]
  - DRUG INEFFECTIVE [None]
  - ERUCTATION [None]
  - FLATULENCE [None]
  - GASTRIC DISORDER [None]
  - GLUCOSE TOLERANCE IMPAIRED [None]
  - HEADACHE [None]
  - NAUSEA [None]
  - OCULOGYRATION [None]
  - OVERDOSE [None]
  - SOMNOLENCE [None]
  - VISUAL DISTURBANCE [None]
